FAERS Safety Report 6709416-1 (Version None)
Quarter: 2010Q2

REPORT INFORMATION
  Report Type: 
  Country: None (occurrence: None)
  Receive Date: 20100504
  Receipt Date: 20100421
  Transmission Date: 20101027
  Serious: Yes (Other)
  Sender: FDA-Public Use
  Company Number: AT-PFIZER INC-2010050799

PATIENT
  Age: 63 Year
  Sex: Female

DRUGS (2)
  1. CHAMPIX [Suspect]
     Indication: SMOKING CESSATION THERAPY
     Dosage: 0.5 MG, 1X/DAY
     Route: 048
  2. THYREX [Concomitant]

REACTIONS (5)
  - AGITATION [None]
  - HYPERHIDROSIS [None]
  - NAUSEA [None]
  - NERVOUSNESS [None]
  - SLEEP DISORDER [None]
